FAERS Safety Report 9240729 (Version 1)
Quarter: 2013Q2

REPORT INFORMATION
  Report Type: Spontaneous
  Country: US (occurrence: None)
  Receive Date: 20130418
  Receipt Date: 20130418
  Transmission Date: 20140414
  Serious: No
  Sender: FDA-Public Use
  Company Number: None

PATIENT
  Age: 62 Year
  Sex: Female

DRUGS (5)
  1. AMPYRA [Suspect]
     Indication: MULTIPLE SCLEROSIS
     Route: 048
     Dates: start: 201302
  2. COPAXONE [Concomitant]
  3. BACLOFEN [Concomitant]
  4. LEVOTHYROXINE [Concomitant]
  5. FLUTICASONE [Concomitant]

REACTIONS (1)
  - Dizziness [None]
